FAERS Safety Report 5165138-2 (Version None)
Quarter: 2006Q4

REPORT INFORMATION
  Report Type: 
  Country: None (occurrence: None)
  Receive Date: 20061124
  Receipt Date: 20061113
  Transmission Date: 20070319
  Serious: Yes (Hospitalization)
  Sender: FDA-Public Use
  Company Number: 2006PV025125

PATIENT
  Age: 54 Year
  Sex: Female
  Weight: 68.0396 kg

DRUGS (10)
  1. BYETTA [Suspect]
     Indication: DIABETES MELLITUS NON-INSULIN-DEPENDENT
     Dosage: SEE IMAGE, SC
     Route: 058
     Dates: start: 20060401, end: 20060501
  2. BYETTA [Suspect]
     Indication: DIABETES MELLITUS NON-INSULIN-DEPENDENT
     Dosage: SEE IMAGE, SC
     Route: 058
     Dates: start: 20060501, end: 20061106
  3. PRINIVIL [Suspect]
     Indication: PROPHYLAXIS
     Dates: start: 20060501
  4. SYNTHROID [Concomitant]
  5. AVANDIA [Concomitant]
  6. AMARYL [Concomitant]
  7. CYMBALTA [Concomitant]
  8. PROTONIX [Concomitant]
  9. LIPITOR [Concomitant]
  10. ZETIA [Concomitant]

REACTIONS (3)
  - DYSPNOEA [None]
  - HAEMOGLOBIN DECREASED [None]
  - WEIGHT DECREASED [None]
